FAERS Safety Report 4679052-X (Version None)
Quarter: 2005Q2

REPORT INFORMATION
  Report Type: 
  Country: None (occurrence: None)
  Receive Date: 20050527
  Receipt Date: 20050516
  Transmission Date: 20051028
  Serious: Yes (Hospitalization, Disabling)
  Sender: FDA-Public Use
  Company Number: 2005063708

PATIENT
  Age: 54 Year
  Sex: Female
  Weight: 90.7194 kg

DRUGS (11)
  1. CELEBREX [Suspect]
     Indication: ARTHRITIS
     Dosage: 200 MG (100 MG, 2 IN 1 D), ORAL
     Route: 048
  2. BEXTRA [Suspect]
     Indication: ARTHRITIS
     Dosage: 20 MG (10 MG, 2 IN 1 D), ORAL
     Route: 048
  3. ULTRAM [Concomitant]
  4. DETROL [Concomitant]
  5. DARVOCET- N (DEXTROPROPOXYPHENE NAPSILATE, PARACETAMOL) [Concomitant]
  6. ARTHROTEC [Concomitant]
  7. SKELAXIN [Concomitant]
  8. VICODIN [Concomitant]
  9. AMITRIPTYLINE HCL [Concomitant]
  10. ALBUTEROL SULFATE 9SALBUTAMOL SULFATE) [Concomitant]
  11. ESTRADERM [Concomitant]

REACTIONS (3)
  - ANKLE OPERATION [None]
  - DRUG EFFECT DECREASED [None]
  - OSTEOPENIA [None]
